FAERS Safety Report 6174757-6 (Version None)
Quarter: 2009Q2

REPORT INFORMATION
  Report Type: 
  Country: None (occurrence: None)
  Receive Date: 20090430
  Receipt Date: 20080912
  Transmission Date: 20091009
  Serious: No
  Sender: FDA-Public Use
  Company Number: US-ASTRAZENECA-2008UW19058

PATIENT
  Age: 70 Year
  Sex: Male
  Weight: 81.6 kg

DRUGS (3)
  1. NEXIUM [Suspect]
     Indication: GASTROOESOPHAGEAL REFLUX DISEASE
     Route: 048
     Dates: start: 20080601
  2. CRESTOR [Concomitant]
     Route: 048
  3. FLOMAX [Concomitant]

REACTIONS (1)
  - URINE FLOW DECREASED [None]
